FAERS Safety Report 23986736 (Version 3)
Quarter: 2024Q3

REPORT INFORMATION
  Report Type: Spontaneous
  Country: US (occurrence: US)
  Receive Date: 20240618
  Receipt Date: 20240918
  Transmission Date: 20241017
  Serious: Yes (Other)
  Sender: CLARION BRANDS
  Company Number: US-CLARIONBRANDS-2024-US-031703

PATIENT
  Age: 74 Year
  Sex: Male
  Weight: 72.58 kg

DRUGS (3)
  1. ABSORBINE JR ULTRA STRENGTH PAIN RELIEVING PATCH [Suspect]
     Active Substance: MENTHOL
     Indication: Analgesic therapy
     Dosage: APPLIED TO RIGHT LEG
     Route: 061
     Dates: start: 20240603, end: 20240603
  2. unspecified diabetes medications [Concomitant]
  3. UNSPECIFIED INGREDIENT [Concomitant]
     Active Substance: UNSPECIFIED INGREDIENT

REACTIONS (5)
  - Application site discolouration [Recovering/Resolving]
  - Application site pain [Recovering/Resolving]
  - Application site vesicles [Recovering/Resolving]
  - Wound [Recovering/Resolving]
  - Burns third degree [Unknown]

NARRATIVE: CASE EVENT DATE: 20240603
